FAERS Safety Report 10416067 (Version 2)
Quarter: 2014Q4

REPORT INFORMATION
  Report Type: Spontaneous
  Country: US (occurrence: US)
  Receive Date: 20140828
  Receipt Date: 20141015
  Transmission Date: 20150528
  Serious: Yes (Other)
  Sender: FDA-Public Use
  Company Number: US-PFIZER INC-2014237785

PATIENT
  Age: 57 Year
  Sex: Female
  Weight: 47.62 kg

DRUGS (4)
  1. LYRICA [Suspect]
     Active Substance: PREGABALIN
     Indication: NEURALGIA
     Dosage: 150 MG, 1X/DAY
     Route: 048
     Dates: start: 201310, end: 2014
  2. LYRICA [Suspect]
     Active Substance: PREGABALIN
     Dosage: 400 MG (TAKING FOUR 100MG), 1X/DAY,
     Route: 048
     Dates: start: 2014
  3. DILTIAZEM [Concomitant]
     Active Substance: DILTIAZEM
     Dosage: 120 MG, 1X/DAY
  4. TRAMADOL [Concomitant]
     Active Substance: TRAMADOL
     Dosage: 200 MG, UNK

REACTIONS (3)
  - Drug ineffective [Unknown]
  - Urinary retention [Not Recovered/Not Resolved]
  - Disease progression [Not Recovered/Not Resolved]

NARRATIVE: CASE EVENT DATE: 2013
